FAERS Safety Report 19373267 (Version 1)
Quarter: 2021Q2

REPORT INFORMATION
  Report Type: Spontaneous
  Country: US (occurrence: US)
  Receive Date: 20210604
  Receipt Date: 20210604
  Transmission Date: 20210717
  Serious: Yes (Other)
  Sender: FDA-Public Use
  Company Number: US-TEVA-2021-US-1919195

PATIENT
  Age: 64 Year
  Sex: Female

DRUGS (9)
  1. ATORVASTATIN CALCIUM ORAL TABLET 20 MG [Concomitant]
     Route: 065
  2. HALOPERIDOL ORAL TABLET 5 MG [Concomitant]
     Route: 065
  3. POTASSIUM CHLORIDE CRYS ER ORAL TABLET EXTENDED RELEASE 20 MEQ [Concomitant]
     Route: 065
  4. GLIPIZIDE ORAL TABLET 10 MG [Concomitant]
     Route: 065
  5. QUETIAPINE FUMARATE ORAL TAB 200 MG [Concomitant]
     Route: 048
  6. METFORMIN HCL ORAL TABLET 500 MG [Concomitant]
     Route: 065
  7. PROPRANALOL HCL ORAL TABLET 10 MG [Concomitant]
     Route: 065
  8. AUSTEDO [Suspect]
     Active Substance: DEUTETRABENAZINE
     Indication: TARDIVE DYSKINESIA
     Dosage: 18 MILLIGRAM DAILY;
     Dates: start: 20210409
  9. LOSARTAN POTASSIUM ORAL TABLET 50 MG [Concomitant]
     Route: 065

REACTIONS (3)
  - Blood pressure increased [Unknown]
  - Blood glucose increased [Unknown]
  - Chest discomfort [Unknown]

NARRATIVE: CASE EVENT DATE: 202105
